FAERS Safety Report 7213223-3 (Version None)
Quarter: 2011Q1

REPORT INFORMATION
  Report Type: 
  Country: None (occurrence: None)
  Receive Date: 20110106
  Receipt Date: 20101229
  Transmission Date: 20110831
  Serious: Yes (Other)
  Sender: FDA-Public Use
  Company Number: US-NAPPMUNDI-USA-2010-0061536

PATIENT
  Age: 50 Year
  Sex: Male
  Weight: 74.83 kg

DRUGS (9)
  1. AMITRIPTYLINE [Suspect]
     Indication: PAIN
     Dosage: UNK UNK, UNK
     Dates: start: 20030101
  2. OXYCONTIN [Suspect]
     Indication: PAIN
     Dosage: 40 MG, BID
     Route: 048
     Dates: start: 20030101
  3. TEGRETOL [Suspect]
     Indication: PAIN
     Dosage: UNK, UNK
     Dates: start: 20030101
  4. NEUROTIN                           /00949202/ [Suspect]
     Indication: PAIN
     Dosage: 300 MG, DAILY
     Route: 048
     Dates: start: 20030701, end: 20090101
  5. BENADRYL [Concomitant]
     Indication: PRODUCT USED FOR UNKNOWN INDICATION
  6. OMEPRAZOLE [Concomitant]
     Indication: PRODUCT USED FOR UNKNOWN INDICATION
     Dosage: 20 MG, BID
     Route: 048
  7. LISINOPRIL [Concomitant]
     Indication: HYPERTENSION
     Dosage: 5 MG, DAILY
  8. TOPAMAX [Suspect]
     Indication: PAIN
     Dosage: UNK, UNK
     Dates: start: 20030101
  9. VALIUM [Concomitant]
     Indication: MUSCLE RELAXANT THERAPY
     Dosage: UNK, UNK

REACTIONS (7)
  - PARAESTHESIA [None]
  - UNEVALUABLE EVENT [None]
  - FEELING HOT [None]
  - SUICIDAL IDEATION [None]
  - FEELING ABNORMAL [None]
  - DRUG INEFFECTIVE [None]
  - BURNING SENSATION [None]
